FAERS Safety Report 6326254-2 (Version None)
Quarter: 2009Q3

REPORT INFORMATION
  Report Type: 
  Country: None (occurrence: None)
  Receive Date: 20090820
  Receipt Date: 20090805
  Transmission Date: 20100115
  Serious: Yes (Death, Other)
  Sender: FDA-Public Use
  Company Number: OPER20090033

PATIENT
  Age: 52 Year
  Sex: Female
  Weight: 62.5964 kg

DRUGS (11)
  1. OPANA ER [Suspect]
     Indication: PAIN
     Dosage: 20 MG, TWICE DAILY, ORAL
     Route: 048
     Dates: start: 20080701
  2. OPANA ER [Suspect]
     Indication: RHEUMATOID ARTHRITIS
     Dosage: 20 MG, TWICE DAILY, ORAL
     Route: 048
     Dates: start: 20080701
  3. OPANA ER [Suspect]
     Indication: PAIN
     Dosage: 40 MG, TWICE DAILY, ORAL
     Route: 048
     Dates: start: 20080701
  4. OPANA ER [Suspect]
     Indication: RHEUMATOID ARTHRITIS
     Dosage: 40 MG, TWICE DAILY, ORAL
     Route: 048
     Dates: start: 20080701
  5. OPANA [Suspect]
     Indication: BREAKTHROUGH PAIN
     Dosage: 10 MG, TWICE DAILY, ORAL
     Route: 048
     Dates: start: 20080701
  6. COCAINE [Suspect]
  7. THC [Suspect]
  8. SOMA [Suspect]
     Indication: MUSCLE SPASMS
     Dosage: 350 MG, FOUR TIMES DAILY
  9. LOTREL [Concomitant]
  10. CYMBALTA [Concomitant]
  11. XANAX [Concomitant]

REACTIONS (2)
  - BRONCHITIS [None]
  - DRUG ABUSE [None]
